FAERS Safety Report 8640743 (Version 3)
Quarter: 2013Q2

REPORT INFORMATION
  Report Type: Spontaneous
  Country: CA (occurrence: CA)
  Receive Date: 20120628
  Receipt Date: 20130513
  Transmission Date: 20140414
  Serious: Yes (Other)
  Sender: FDA-Public Use
  Company Number: CA-JNJFOC-20120609580

PATIENT
  Age: 71 Year
  Sex: Female
  Weight: 51.2 kg

DRUGS (8)
  1. REMICADE [Suspect]
     Indication: SPONDYLOARTHROPATHY
     Route: 042
     Dates: start: 20120816
  2. REMICADE [Suspect]
     Indication: SPONDYLOARTHROPATHY
     Dosage: HAS HAD 24 INFLIXIAMB INFUSIONS
     Route: 042
     Dates: start: 20090617
  3. REMICADE [Suspect]
     Indication: PSORIATIC ARTHROPATHY
     Dosage: HAS HAD 24 INFLIXIAMB INFUSIONS
     Route: 042
     Dates: start: 20090617
  4. REMICADE [Suspect]
     Indication: PSORIATIC ARTHROPATHY
     Route: 042
     Dates: start: 20120816
  5. METHOTREXATE [Suspect]
     Indication: SPONDYLOARTHROPATHY
     Route: 065
     Dates: start: 20120815
  6. METHOTREXATE [Suspect]
     Indication: SPONDYLOARTHROPATHY
     Dosage: DURATION: FOR YEARS
     Route: 065
  7. FOLIC ACID [Concomitant]
     Route: 065
  8. PANTOLOC [Concomitant]
     Route: 065

REACTIONS (10)
  - Weight decreased [Not Recovered/Not Resolved]
  - Psoriasis [Not Recovered/Not Resolved]
  - Pain [Not Recovered/Not Resolved]
  - Fungal infection [Not Recovered/Not Resolved]
  - Vaginal discharge [Recovered/Resolved]
  - Asthenia [Not Recovered/Not Resolved]
  - Mouth ulceration [Recovered/Resolved]
  - Nasopharyngitis [Not Recovered/Not Resolved]
  - Dysphonia [Not Recovered/Not Resolved]
  - Pallor [Not Recovered/Not Resolved]
